FAERS Safety Report 12847615 (Version 1)
Quarter: 2016Q4

REPORT INFORMATION
  Report Type: Report from Study
  Country: JP (occurrence: JP)
  Receive Date: 20161014
  Receipt Date: 20161014
  Transmission Date: 20170207
  Serious: Yes (Hospitalization)
  Sender: FDA-Public Use
  Company Number: JP-SA-2016SA186961

PATIENT
  Age: 60 Year
  Sex: Female

DRUGS (4)
  1. REGPARA [Suspect]
     Active Substance: CINACALCET HYDROCHLORIDE
     Route: 048
     Dates: start: 20130907
  2. EPOETIN ALFA [Suspect]
     Active Substance: ERYTHROPOIETIN
     Route: 065
     Dates: start: 20160105, end: 20160213
  3. EPOETIN ALFA [Suspect]
     Active Substance: ERYTHROPOIETIN
     Route: 065
     Dates: start: 20160216, end: 20160618
  4. PHOSBLOCK [Suspect]
     Active Substance: FERRIC HYDROXIDE
     Route: 048
     Dates: start: 20140303

REACTIONS (1)
  - Renal cyst [Recovering/Resolving]

NARRATIVE: CASE EVENT DATE: 20160516
